FAERS Safety Report 23856212 (Version 2)
Quarter: 2024Q2

REPORT INFORMATION
  Report Type: Spontaneous
  Country: US (occurrence: US)
  Receive Date: 20240515
  Receipt Date: 20240626
  Transmission Date: 20240716
  Serious: No
  Sender: FDA-Public Use
  Company Number: US-TARSUS PHARMACEUTICALS-TSP-US-2024-000058

PATIENT
  Age: 75 Year
  Sex: Female

DRUGS (1)
  1. XDEMVY [Suspect]
     Active Substance: LOTILANER
     Indication: Demodex blepharitis
     Dosage: 1 DROP, BID (IN EACH EYE)
     Route: 047
     Dates: start: 202401, end: 20240211

REACTIONS (2)
  - Lacrimation increased [Recovered/Resolved]
  - Instillation site irritation [Recovered/Resolved]

NARRATIVE: CASE EVENT DATE: 20240101
